FAERS Safety Report 7952133-0 (Version None)
Quarter: 2011Q4

REPORT INFORMATION
  Report Type: 
  Country: None (occurrence: None)
  Receive Date: 20111201
  Receipt Date: 20111118
  Transmission Date: 20120403
  Serious: Yes (Other)
  Sender: FDA-Public Use
  Company Number: PHHY2011BR102395

PATIENT
  Sex: Male

DRUGS (4)
  1. RASILEZ [Suspect]
     Indication: HYPERTENSION
     Dosage: 1 DF(300 MG), A DAY
     Route: 048
  2. EXFORGE [Suspect]
     Indication: HYPERTENSION
     Dosage: 1 DF(320/10 MG) A DAY
     Route: 048
  3. METOPROLOL TARTRATE [Suspect]
     Indication: HYPERTENSION
     Dosage: 100 MG, A DAY
     Route: 048
  4. RASILEZ [Suspect]
     Dosage: 1 DF, BID (300 MG)
     Route: 048

REACTIONS (7)
  - HYPERSENSITIVITY [None]
  - BLISTER [None]
  - SKIN DISCOLOURATION [None]
  - PRURITUS [None]
  - TOXICITY TO VARIOUS AGENTS [None]
  - PURPURA [None]
  - SKIN LESION [None]
